FAERS Safety Report 4636968-8 (Version None)
Quarter: 2005Q2

REPORT INFORMATION
  Report Type: 
  Country: None (occurrence: None)
  Receive Date: 20050414
  Receipt Date: 20050401
  Transmission Date: 20051028
  Serious: Yes (Hospitalization)
  Sender: FDA-Public Use
  Company Number: HQWYE629301APR05

PATIENT
  Age: 80 Year
  Sex: Male

DRUGS (5)
  1. CORDARONE [Suspect]
     Indication: ATRIAL FIBRILLATION
     Dosage: 200 MG 1X PER 1 DAY; ORAL A FEW YEARS
     Route: 048
     Dates: end: 20050101
  2. CORDARONE [Suspect]
     Indication: ATRIAL FLUTTER
     Dosage: 200 MG 1X PER 1 DAY; ORAL A FEW YEARS
     Route: 048
     Dates: end: 20050101
  3. MARCUMAR [Concomitant]
  4. ZESTORETIC [Concomitant]
  5. AKTIFERRIN (FERROUS SULFATE/SERINE) [Concomitant]

REACTIONS (5)
  - CHOLELITHIASIS [None]
  - DYSPNOEA AT REST [None]
  - HAEMOPTYSIS [None]
  - HEPATIC STEATOSIS [None]
  - PNEUMONITIS [None]
